FAERS Safety Report 10914648 (Version 1)
Quarter: 2015Q1

REPORT INFORMATION
  Report Type: Report from Study
  Country: US (occurrence: US)
  Receive Date: 20150313
  Receipt Date: 20150313
  Transmission Date: 20150721
  Serious: Yes (Death, Hospitalization, Other)
  Sender: FDA-Public Use
  Company Number: US-009507513-1503USA004091

PATIENT
  Age: 56 Year
  Sex: Male
  Weight: 96 kg

DRUGS (22)
  1. TEMODAR [Suspect]
     Active Substance: TEMOZOLOMIDE
     Indication: GLIOBLASTOMA MULTIFORME
     Dosage: 220 MG, QD (DAYS 1- 5 AND 15-19/28 DAYS CYCLE)
     Route: 048
     Dates: start: 20090404, end: 2009
  2. BEVACIZUMAB [Suspect]
     Active Substance: BEVACIZUMAB
     Indication: GLIOBLASTOMA MULTIFORME
     Dosage: 900 MG, EVERY 14 DAYS (DAYS 1 AND 5/28 DAY CYCLE)
     Route: 042
     Dates: start: 20091116, end: 200911
  3. BEVACIZUMAB [Suspect]
     Active Substance: BEVACIZUMAB
     Dosage: 990 MG, QD
     Route: 042
     Dates: start: 20091214
  4. GLIPIZIDE. [Concomitant]
     Active Substance: GLIPIZIDE
     Dosage: 10 MG, QPM
  5. KLONOPIN [Concomitant]
     Active Substance: CLONAZEPAM
     Dosage: 0.5 MG, BID
  6. KEPPRA [Concomitant]
     Active Substance: LEVETIRACETAM
     Dosage: 1250 MG, BID
  7. IBUPROFEN. [Concomitant]
     Active Substance: IBUPROFEN
  8. GLIPIZIDE. [Concomitant]
     Active Substance: GLIPIZIDE
     Dosage: 5 MG, QPM
  9. HEXADROL [Concomitant]
     Active Substance: DEXAMETHASONE
     Dosage: 1 MG, BID
     Route: 048
  10. HEXADROL [Concomitant]
     Active Substance: DEXAMETHASONE
     Dosage: 2 MG, BID
     Route: 048
  11. HEXADROL [Concomitant]
     Active Substance: DEXAMETHASONE
     Dosage: 4 MG, BID
     Route: 048
  12. TEMODAR [Suspect]
     Active Substance: TEMOZOLOMIDE
     Dosage: 220 MG, QD (QDX5 EVERY 14 DAYS)
     Route: 048
     Dates: end: 20100129
  13. BEVACIZUMAB [Suspect]
     Active Substance: BEVACIZUMAB
     Dosage: 990 MG, QD 90 MG (ONCE EVERY 14 DAYS)
     Route: 042
     Dates: end: 20100125
  14. TEMODAR [Suspect]
     Active Substance: TEMOZOLOMIDE
     Dosage: 200 MG, QD (X 5 DAYS EVERY 14 DAYS)
     Route: 048
     Dates: start: 20091116, end: 200911
  15. TEMODAR [Suspect]
     Active Substance: TEMOZOLOMIDE
     Dosage: 200 MG, QD  (200 MG, QD (DAYS 1- 5 AND 15-19/28 DAYS CYCLE))
     Route: 048
     Dates: start: 20091125, end: 20091130
  16. BEVACIZUMAB [Suspect]
     Active Substance: BEVACIZUMAB
     Dosage: 990 MG, QD (X5DAYS)
     Route: 042
     Dates: start: 20091130, end: 2009
  17. LOVENOX [Suspect]
     Active Substance: ENOXAPARIN SODIUM
     Indication: PRODUCT USED FOR UNKNOWN INDICATION
     Dosage: 100 MG, PRN
     Route: 058
  18. LENTE INSULIN [Concomitant]
     Active Substance: INSULIN BEEF
     Dosage: 28 DF, BID
  19. TEMODAR [Suspect]
     Active Substance: TEMOZOLOMIDE
     Dosage: 200 MG, QD (DAYS 1- 5 AND 15-19/28 DAYS CYCLE)
     Route: 048
     Dates: start: 20090616, end: 20091017
  20. TYLENOL [Concomitant]
     Active Substance: ACETAMINOPHEN
     Dosage: 1000 MG, PRN
  21. DILANTIN [Concomitant]
     Active Substance: PHENYTOIN
     Dosage: 200 MG, BID
  22. PRILOSEC [Concomitant]
     Active Substance: OMEPRAZOLE MAGNESIUM

REACTIONS (13)
  - Tumour excision [Not Recovered/Not Resolved]
  - Coma [Not Recovered/Not Resolved]
  - Seizure [Recovered/Resolved]
  - Electrocardiogram abnormal [Not Recovered/Not Resolved]
  - Diabetes mellitus [Not Recovered/Not Resolved]
  - Mental status changes [Not Recovered/Not Resolved]
  - Pain in extremity [Not Recovered/Not Resolved]
  - Seizure [Recovered/Resolved]
  - Craniotomy [Not Recovered/Not Resolved]
  - Mental status changes [Recovered/Resolved]
  - Deep vein thrombosis [Not Recovered/Not Resolved]
  - Encephalopathy [Not Recovered/Not Resolved]
  - Haemorrhage intracranial [Fatal]

NARRATIVE: CASE EVENT DATE: 2009
